FAERS Safety Report 5967291-7 (Version None)
Quarter: 2008Q4

REPORT INFORMATION
  Report Type: 
  Country: None (occurrence: None)
  Receive Date: 20081125
  Receipt Date: 20081121
  Transmission Date: 20090506
  Serious: Yes (Hospitalization)
  Sender: FDA-Public Use
  Company Number: CG-MERCK-0811USA02366

PATIENT
  Age: 18 Year
  Sex: Male

DRUGS (1)
  1. STROMECTOL [Suspect]
     Indication: ONCHOCERCIASIS
     Route: 048
     Dates: start: 20081008, end: 20081008

REACTIONS (5)
  - ASTHENIA [None]
  - FACE OEDEMA [None]
  - GAIT DISTURBANCE [None]
  - OCULAR HYPERAEMIA [None]
  - PYREXIA [None]
